FAERS Safety Report 9262432 (Version 2)
Quarter: 2013Q2

REPORT INFORMATION
  Report Type: Spontaneous
  Country: CZ (occurrence: None)
  Receive Date: 20130425
  Receipt Date: 20130524
  Transmission Date: 20140414
  Serious: Yes (Hospitalization, Other)
  Sender: FDA-Public Use
  Company Number: VAL_02302_2013

PATIENT
  Age: 66 Year
  Sex: Female
  Weight: 81 kg

DRUGS (9)
  1. METOPROLOL [Suspect]
     Indication: PRODUCT USED FOR UNKNOWN INDICATION
  2. PROPAFENONE [Suspect]
     Indication: ARRHYTHMIA PROPHYLAXIS
  3. AMLODIPINE (UNKNOWN) [Concomitant]
  4. LOSARTAN (UNKNOWN) (LOSARTAN) [Concomitant]
  5. RILMENIDINE (UNKNOWN) [Concomitant]
  6. FUROSEMIDE (UNKNOWN) [Concomitant]
  7. CAPTORPIL [Concomitant]
  8. ACETYLSALICYLIC ACID (UJKNOWN) [Concomitant]
  9. ISOSORBIDE MONITRATE (UNKNOWN) [Concomitant]

REACTIONS (10)
  - Fatigue [None]
  - Dyspnoea exertional [None]
  - Orthopnoea [None]
  - Oedema peripheral [None]
  - Chest pain [None]
  - Blood pressure increased [None]
  - Cardiac failure [None]
  - Atrial fibrillation [None]
  - Drug interaction [None]
  - Drug level increased [None]
